FAERS Safety Report 7177945-5 (Version None)
Quarter: 2010Q4

REPORT INFORMATION
  Report Type: 
  Country: None (occurrence: None)
  Receive Date: 20101208
  Receipt Date: 20030301
  Transmission Date: 20110411
  Serious: Yes (Death)
  Sender: FDA-Public Use
  Company Number: UTC-002654

PATIENT

DRUGS (1)
  1. REMODULIN [Suspect]
     Dosage: SUBCUTANEOUS
     Route: 058
     Dates: start: 20021001, end: 20030301

REACTIONS (1)
  - DEATH [None]
